FAERS Safety Report 10096719 (Version 2)
Quarter: 2014Q2

REPORT INFORMATION
  Report Type: Spontaneous
  Country: US (occurrence: US)
  Receive Date: 20140422
  Receipt Date: 20140422
  Transmission Date: 20141212
  Serious: Yes (Other)
  Sender: FDA-Public Use
  Company Number: CHPA2012US005302

PATIENT
  Age: 84 Year
  Sex: Female

DRUGS (2)
  1. VOLTAREN GEL [Suspect]
     Indication: ARTHRITIS
     Dosage: 1 TIME DAILY IN THE AM
     Route: 061
     Dates: start: 20110407, end: 20120320
  2. VOLTAREN GEL [Suspect]
     Indication: MUSCULOSKELETAL PAIN

REACTIONS (4)
  - Humerus fracture [Not Recovered/Not Resolved]
  - Road traffic accident [Not Recovered/Not Resolved]
  - Off label use [Unknown]
  - Drug administered at inappropriate site [Unknown]
